FAERS Safety Report 21763764 (Version 2)
Quarter: 2023Q1

REPORT INFORMATION
  Report Type: Report from Study
  Country: EG (occurrence: EG)
  Receive Date: 20221222
  Receipt Date: 20230221
  Transmission Date: 20230417
  Serious: Yes (Hospitalization, Disabling)
  Sender: FDA-Public Use
  Company Number: EG-BIOGEN-2022BI01176979

PATIENT
  Age: 19 Year
  Sex: Female
  Weight: 78 kg

DRUGS (1)
  1. TYSABRI [Suspect]
     Active Substance: NATALIZUMAB
     Indication: Multiple sclerosis
     Dosage: 300MG/15ML
     Route: 050
     Dates: start: 20220109, end: 20220909

REACTIONS (5)
  - Hemihypoaesthesia [Recovered/Resolved]
  - Feeling cold [Recovered/Resolved]
  - Loss of control of legs [Recovered/Resolved]
  - Tongue discomfort [Recovered/Resolved]
  - Vision blurred [Recovered/Resolved]

NARRATIVE: CASE EVENT DATE: 20220701
